FAERS Safety Report 11852513 (Version 2)
Quarter: 2016Q1

REPORT INFORMATION
  Report Type: Spontaneous
  Country: US (occurrence: US)
  Receive Date: 20151218
  Receipt Date: 20160111
  Transmission Date: 20160526
  Serious: Yes (Other)
  Sender: FDA-Public Use
  Company Number: US-LPDUSPRD-20151024

PATIENT
  Age: 11 Week
  Sex: Female
  Weight: 3.8 kg

DRUGS (3)
  1. ADENOSINE. [Concomitant]
     Active Substance: ADENOSINE
     Dosage: DOSE NOT PROVIDED
     Route: 065
  2. AMIODARONE [Suspect]
     Active Substance: AMIODARONE
     Dosage: SEE NARRATIVE
     Route: 042
  3. ESMOLOL HYDROCHLORIDE INJECTION (0517-1810-01) [Suspect]
     Active Substance: ESMOLOL HYDROCHLORIDE
     Dosage: SEE NARRATIVE
     Route: 042

REACTIONS (2)
  - Bradycardia [Unknown]
  - Cardiac output decreased [Unknown]
